FAERS Safety Report 14137859 (Version 2)
Quarter: 2019Q1

REPORT INFORMATION
  Report Type: Spontaneous
  Country: FR (occurrence: FR)
  Receive Date: 20171027
  Receipt Date: 20190128
  Transmission Date: 20190417
  Serious: Yes (Other)
  Sender: FDA-Public Use
  Company Number: FR-MERCK KGAA-2031738

PATIENT
  Age: 52 Year
  Sex: Female
  Weight: 83 kg

DRUGS (1)
  1. EUTHYROX [Suspect]
     Active Substance: LEVOTHYROXINE SODIUM
     Indication: HYPOTHYROIDISM
     Route: 048
     Dates: start: 201703, end: 20170824

REACTIONS (21)
  - Blood thyroid stimulating hormone increased [Recovered/Resolved]
  - Memory impairment [Recovered/Resolved]
  - Gait disturbance [Not Recovered/Not Resolved]
  - Aerophagia [Not Recovered/Not Resolved]
  - Panic reaction [Recovered/Resolved]
  - Face oedema [Recovered/Resolved]
  - Dry eye [Recovered/Resolved]
  - Blood thyroid stimulating hormone normal [Not Recovered/Not Resolved]
  - Fatigue [Not Recovered/Not Resolved]
  - Abdominal distension [Not Recovered/Not Resolved]
  - Formication [Recovered/Resolved]
  - Gastrooesophageal reflux disease [Not Recovered/Not Resolved]
  - Tremor [Recovered/Resolved]
  - Insomnia [Not Recovered/Not Resolved]
  - Arthralgia [Not Recovered/Not Resolved]
  - Hyperhidrosis [Not Recovered/Not Resolved]
  - Muscle spasms [Not Recovered/Not Resolved]
  - Weight increased [Not Recovered/Not Resolved]
  - Myalgia [Not Recovered/Not Resolved]
  - Anxiety [Recovered/Resolved]
  - Vein disorder [Recovered/Resolved]

NARRATIVE: CASE EVENT DATE: 20170401
